FAERS Safety Report 7228132-3 (Version None)
Quarter: 2011Q1

REPORT INFORMATION
  Report Type: 
  Country: None (occurrence: None)
  Receive Date: 20110114
  Receipt Date: 20110106
  Transmission Date: 20110831
  Serious: Yes (Death)
  Sender: FDA-Public Use
  Company Number: US-B.I. PHARMACEUTICALS,INC./RIDGEFIELD-2011-DE-00405GD

PATIENT
  Age: 59 Year
  Sex: Female

DRUGS (4)
  1. DILTIAZEM [Suspect]
     Route: 048
  2. ANGIOTENSIN II ANTAGONISTS [Suspect]
     Route: 048
  3. CLONIDINE [Suspect]
     Route: 048
  4. NITROGLYCERIN [Suspect]
     Route: 048

REACTIONS (1)
  - COMPLETED SUICIDE [None]
